FAERS Safety Report 15506542 (Version 2)
Quarter: 2018Q4

REPORT INFORMATION
  Report Type: Report from Study
  Country: BE (occurrence: BE)
  Receive Date: 20181016
  Receipt Date: 20181019
  Transmission Date: 20190205
  Serious: No
  Sender: FDA-Public Use
  Company Number: BE-PFIZER INC-2018417968

PATIENT

DRUGS (2)
  1. IBUPROFEN. [Suspect]
     Active Substance: IBUPROFEN
     Indication: PATENT DUCTUS ARTERIOSUS
     Dosage: 10 MG/KG, UNK (INITIAL DOSE OF 10 MG PER KILOGRAM, FOLLOWED BY TWO DOSES OF 5 MG PER KILOGRAM EACH)
  2. IBUPROFEN. [Suspect]
     Active Substance: IBUPROFEN
     Dosage: 5 MG/KG, UNK  (FOLLOWED BY TWO DOSES OF 5 MG PER KILOGRAM EACH, AFTER 24 AND 48 HOURS

REACTIONS (1)
  - Oliguria [Unknown]
